FAERS Safety Report 9678736 (Version 2)
Quarter: 2014Q1

REPORT INFORMATION
  Report Type: Spontaneous
  Country: US (occurrence: US)
  Receive Date: 20131108
  Receipt Date: 20140221
  Transmission Date: 20141002
  Serious: Yes (Hospitalization)
  Sender: FDA-Public Use
  Company Number: US-B.I. PHARMACEUTICALS,INC./RIDGEFIELD-2013-BI-35470BP

PATIENT
  Age: 70 Year
  Sex: Female
  Weight: 65.77 kg

DRUGS (9)
  1. PRADAXA [Suspect]
     Indication: ANTICOAGULANT THERAPY
     Dosage: 150 MG
     Route: 048
     Dates: start: 20120427, end: 20120505
  2. PRADAXA [Suspect]
     Indication: ATRIAL FIBRILLATION
  3. CATAPRES [Concomitant]
  4. DIPHENHYDRAMINE [Concomitant]
  5. COLACE [Concomitant]
  6. HYDRALAZINE [Concomitant]
  7. ATIVAN [Concomitant]
     Dosage: 3 MG
  8. MAG-OX [Concomitant]
  9. LOPRESSOR [Concomitant]

REACTIONS (4)
  - Gastrointestinal haemorrhage [Unknown]
  - Gastric ulcer [Unknown]
  - Coagulopathy [Unknown]
  - Anaemia [Unknown]
